FAERS Safety Report 6173014-1 (Version None)
Quarter: 2009Q2

REPORT INFORMATION
  Report Type: 
  Country: None (occurrence: None)
  Receive Date: 20090428
  Receipt Date: 20090416
  Transmission Date: 20091009
  Serious: Yes (Death, Hospitalization)
  Sender: FDA-Public Use
  Company Number: 006050

PATIENT
  Age: 64 Year
  Sex: Male

DRUGS (3)
  1. BUSULFEX [Suspect]
     Indication: STEM CELL TRANSPLANT
     Dosage: 3.2 MG/KG, QD, INTRAVENOUS
     Route: 042
  2. MELPHALAN (MELPHALAN) [Concomitant]
  3. PHENYTOIN [Concomitant]

REACTIONS (3)
  - MUCOSAL INFLAMMATION [None]
  - PNEUMONIA [None]
  - SEPTIC SHOCK [None]
